FAERS Safety Report 8553341-0 (Version None)
Quarter: 2012Q3

REPORT INFORMATION
  Report Type: 
  Country: None (occurrence: None)
  Receive Date: 20120725
  Receipt Date: 20120725
  Transmission Date: 20120928
  Serious: Yes (Death)
  Sender: FDA-Public Use
  Company Number: None

PATIENT
  Age: 94 Year
  Sex: Male
  Weight: 58.0604 kg

DRUGS (2)
  1. PRADAXA - DABIGATRON 75MG B0EHRINGER INGLEHEIM [Suspect]
     Indication: CARDIAC FAILURE CONGESTIVE
     Dosage: 75MG BID PO
     Route: 048
     Dates: start: 20111206, end: 20120703
  2. PRADAXA - DABIGATRON 75MG B0EHRINGER INGLEHEIM [Suspect]
     Indication: ATRIAL FIBRILLATION
     Dosage: 75MG BID PO
     Route: 048
     Dates: start: 20111206, end: 20120703

REACTIONS (13)
  - HYPOTENSION [None]
  - EXCORIATION [None]
  - INJURY [None]
  - MEDICATION ERROR [None]
  - ANAEMIA [None]
  - GASTROINTESTINAL HAEMORRHAGE [None]
  - DIARRHOEA [None]
  - LOSS OF CONSCIOUSNESS [None]
  - ASTHENIA [None]
  - ABDOMINAL DISCOMFORT [None]
  - LACERATION [None]
  - ARTHRALGIA [None]
  - SYNCOPE [None]
